FAERS Safety Report 20967153 (Version 8)
Quarter: 2022Q4

REPORT INFORMATION
  Report Type: Report from Study
  Country: ES (occurrence: ES)
  Receive Date: 20220616
  Receipt Date: 20221010
  Transmission Date: 20230113
  Serious: Yes (Hospitalization)
  Sender: FDA-Public Use
  Company Number: ES-ABBVIE-22K-144-4432097-00

PATIENT
  Sex: Female
  Weight: 85 kg

DRUGS (3)
  1. CARBIDOPA\LEVODOPA [Suspect]
     Active Substance: CARBIDOPA\LEVODOPA
     Indication: Parkinson^s disease
     Route: 050
     Dates: start: 20160518, end: 20220613
  2. CARBIDOPA\LEVODOPA [Suspect]
     Active Substance: CARBIDOPA\LEVODOPA
     Dosage: CONTINUOUS RATE INCREASED
     Route: 050
     Dates: start: 20220613, end: 20220620
  3. CARBIDOPA\LEVODOPA [Suspect]
     Active Substance: CARBIDOPA\LEVODOPA
     Dosage: CONTINUOUS RATE WAS DECREASED AGAIN, THIS TIME TO 2.4 ML/H
     Route: 050
     Dates: start: 20220620

REACTIONS (10)
  - COVID-19 [Recovered/Resolved]
  - Gait inability [Not Recovered/Not Resolved]
  - Mental impairment [Recovered/Resolved]
  - Dysstasia [Not Recovered/Not Resolved]
  - General physical health deterioration [Unknown]
  - Hypoaesthesia [Not Recovered/Not Resolved]
  - Asthenia [Recovered/Resolved]
  - Somnolence [Recovered/Resolved]
  - Parkinson^s disease [Unknown]
  - Drug ineffective [Not Recovered/Not Resolved]

NARRATIVE: CASE EVENT DATE: 20220101
